FAERS Safety Report 5378288-2 (Version None)
Quarter: 2007Q3

REPORT INFORMATION
  Report Type: 
  Country: None (occurrence: None)
  Receive Date: 20070705
  Receipt Date: 20070628
  Transmission Date: 20080115
  Serious: Yes (Death)
  Sender: FDA-Public Use
  Company Number: GB-BAYER-200710718BNE

PATIENT

DRUGS (1)
  1. MOXIFLOXACIN HCL [Suspect]

REACTIONS (1)
  - INTESTINAL RESECTION [None]
